FAERS Safety Report 12238742 (Version 1)
Quarter: 2016Q2

REPORT INFORMATION
  Report Type: Spontaneous
  Country: US (occurrence: US)
  Receive Date: 20160405
  Receipt Date: 20160405
  Transmission Date: 20160815
  Serious: No
  Sender: FDA-Public Use
  Company Number: US-TEVA-590722USA

PATIENT
  Age: 78 Year
  Sex: Male
  Weight: 59.93 kg

DRUGS (1)
  1. WARFARIN [Suspect]
     Active Substance: WARFARIN
     Route: 065

REACTIONS (3)
  - Abdominal pain [Unknown]
  - Diarrhoea [Unknown]
  - Abdominal distension [Unknown]
